FAERS Safety Report 5731009-3 (Version None)
Quarter: 2008Q2

REPORT INFORMATION
  Report Type: 
  Country: None (occurrence: None)
  Receive Date: 20080505
  Receipt Date: 20080425
  Transmission Date: 20081010
  Serious: Yes (Hospitalization)
  Sender: FDA-Public Use
  Company Number: 2008SP007889

PATIENT
  Age: 35 Year
  Sex: Female

DRUGS (2)
  1. PEG-INTRON [Suspect]
     Indication: HEPATITIS C
     Dates: start: 20070917
  2. RIBAVIRIN [Suspect]
     Indication: HEPATITIS C
     Dosage: PO
     Route: 048
     Dates: start: 20070917

REACTIONS (9)
  - ABDOMINAL PAIN UPPER [None]
  - GASTROINTESTINAL INFECTION [None]
  - INFECTION [None]
  - LOSS OF CONSCIOUSNESS [None]
  - RED BLOOD CELL COUNT DECREASED [None]
  - RENAL PAIN [None]
  - THROMBOSIS [None]
  - URINE ANALYSIS ABNORMAL [None]
  - WHITE BLOOD CELL COUNT DECREASED [None]
